FAERS Safety Report 19935705 (Version 3)
Quarter: 2022Q4

REPORT INFORMATION
  Report Type: Spontaneous
  Country: PL (occurrence: PL)
  Receive Date: 20211009
  Receipt Date: 20221028
  Transmission Date: 20230113
  Serious: Yes (Other)
  Sender: FDA-Public Use
  Company Number: PL-NOVARTISPH-NVSC2021PL220629

PATIENT
  Age: 35 Year
  Sex: Female

DRUGS (6)
  1. RYDAPT [Suspect]
     Active Substance: MIDOSTAURIN
     Indication: Acute myeloid leukaemia
     Dosage: 100 MG, CYCLIC  (2 X 50 MG, DAYS 8 TO 21)
     Route: 065
     Dates: start: 20210723
  2. RYDAPT [Suspect]
     Active Substance: MIDOSTAURIN
     Dosage: 100 MG, CYCLIC  (2 X 50 MG, DAYS 8 TO 21)
     Route: 065
     Dates: start: 20210824, end: 20210828
  3. CYTARABINE [Suspect]
     Active Substance: CYTARABINE
     Indication: Acute myeloid leukaemia
     Dosage: 200 MG/M2, CYCLIC (DAYS 1 TO 7)
     Route: 065
     Dates: start: 20210723
  4. CYTARABINE [Suspect]
     Active Substance: CYTARABINE
     Dosage: UNK (2 G/M2 EVERY 12 HOURS ON DAYS 1, 3, 5)
     Route: 065
     Dates: start: 20210824, end: 20210828
  5. CYTARABINE [Suspect]
     Active Substance: CYTARABINE
     Dosage: 200 MG/M2, CYCLIC, EVERY 12 HOURS ON DAYS 1, 3, 5
     Route: 065
     Dates: start: 20210824, end: 20210828
  6. DAUNORUBICIN [Suspect]
     Active Substance: DAUNORUBICIN
     Indication: Product used for unknown indication
     Dosage: 60 MG/M2 (DAY 1-3)
     Route: 065

REACTIONS (8)
  - Soft tissue inflammation [Unknown]
  - Pseudomonas infection [Unknown]
  - Pyrexia [Unknown]
  - Myelosuppression [Unknown]
  - Skin lesion [Unknown]
  - Nausea [Unknown]
  - Vomiting [Unknown]
  - Laboratory test abnormal [Unknown]
